FAERS Safety Report 6820228-0 (Version None)
Quarter: 2010Q3

REPORT INFORMATION
  Report Type: 
  Country: None (occurrence: None)
  Receive Date: 20100707
  Receipt Date: 20100628
  Transmission Date: 20110219
  Serious: Yes (Hospitalization, Other)
  Sender: FDA-Public Use
  Company Number: US-BAYER-201024129NA

PATIENT
  Age: 67 Year
  Sex: Female
  Weight: 82 kg

DRUGS (7)
  1. AVELOX [Suspect]
     Indication: PRODUCT USED FOR UNKNOWN INDICATION
     Route: 048
     Dates: start: 20090801
  2. HORMONES [Concomitant]
  3. LYRICA [Concomitant]
  4. SYNTHROID [Concomitant]
  5. FISH OIL [Concomitant]
  6. CALCIUM CARBONATE [Concomitant]
  7. RED RICE YEAST [Concomitant]

REACTIONS (7)
  - APHAGIA [None]
  - DYSPEPSIA [None]
  - GASTRIC DISORDER [None]
  - INSOMNIA [None]
  - LIVER INJURY [None]
  - MALAISE [None]
  - WEIGHT DECREASED [None]
